FAERS Safety Report 21970389 (Version 1)
Quarter: 2023Q1

REPORT INFORMATION
  Report Type: Spontaneous
  Country: US (occurrence: US)
  Receive Date: 20230209
  Receipt Date: 20230209
  Transmission Date: 20230417
  Serious: No
  Sender: FDA-Public Use
  Company Number: US-GSKCCFUS-Case-01617653_AE-91368

PATIENT
  Sex: Male

DRUGS (2)
  1. TRELEGY ELLIPTA [Suspect]
     Active Substance: FLUTICASONE FUROATE\UMECLIDINIUM BROMIDE\VILANTEROL TRIFENATATE
     Indication: Chronic obstructive pulmonary disease
     Dosage: UNK UNK, QD,200/62.5/25
     Route: 055
  2. SALT WATER [Concomitant]
     Indication: Product used for unknown indication
     Dosage: UNK

REACTIONS (4)
  - Oral candidiasis [Not Recovered/Not Resolved]
  - Eating disorder [Unknown]
  - Incorrect dose administered [Unknown]
  - Wrong technique in product usage process [Unknown]
